FAERS Safety Report 14918214 (Version 1)
Quarter: 2018Q2

REPORT INFORMATION
  Report Type: Spontaneous
  Country: US (occurrence: US)
  Receive Date: 20180502
  Receipt Date: 20180502
  Transmission Date: 20180711
  Serious: No
  Sender: FDA-Public Use
  Company Number: None

PATIENT
  Age: 63 Year
  Sex: Female
  Weight: 72 kg

DRUGS (1)
  1. CETAPHIL [Suspect]
     Active Substance: AVOBENZONE\OCTOCRYLENE\TRICLOSAN
     Indication: ACNE
     Route: 061

REACTIONS (5)
  - Erythema [None]
  - Dry skin [None]
  - Burning sensation [None]
  - Acne [None]
  - Blister [None]

NARRATIVE: CASE EVENT DATE: 20180417
